FAERS Safety Report 4802537-X (Version None)
Quarter: 2005Q4

REPORT INFORMATION
  Report Type: 
  Country: None (occurrence: None)
  Receive Date: 20051013
  Receipt Date: 20050927
  Transmission Date: 20060501
  Serious: Yes (Life-Threatening)
  Sender: FDA-Public Use
  Company Number: 2005S1009594

PATIENT
  Age: 43 Year
  Sex: Male
  Weight: 63.9572 kg

DRUGS (10)
  1. FENTANYL TRANSDERMAL SYSTEM [Suspect]
     Indication: SCOLIOSIS
     Dosage: 100 MCG/HR; QOD; TDER
     Route: 062
     Dates: start: 20050501
  2. NUBAIN [Suspect]
     Indication: MIGRAINE
     Dosage: 20 MG; X1; IM
     Route: 030
     Dates: start: 20050818, end: 20050818
  3. LOSARTAN POTASSIUM [Concomitant]
  4. CYCLOBENZAPRINE HCL [Concomitant]
  5. BISOPROLOL FUMARATE AND HYDROCHLOROTHIAZIDE [Concomitant]
  6. LIDOCAINE [Concomitant]
  7. PROMETHAZINE HYDROCHLORIDE [Concomitant]
  8. BACLOFEN [Concomitant]
  9. PARACETAMOL/OXYCODONE HYDROCHLORIDE [Concomitant]
  10. PARACETAMOL/HYDROCODONE BITARTRATE [Concomitant]

REACTIONS (8)
  - CONVULSION [None]
  - DRUG WITHDRAWAL SYNDROME [None]
  - HYPERHIDROSIS [None]
  - INCONTINENCE [None]
  - MIGRAINE [None]
  - MOTOR DYSFUNCTION [None]
  - NAUSEA [None]
  - RESPIRATORY DISORDER [None]
